FAERS Safety Report 20321370 (Version 1)
Quarter: 2022Q1

REPORT INFORMATION
  Report Type: Spontaneous
  Country: US (occurrence: US)
  Receive Date: 20220111
  Receipt Date: 20220111
  Transmission Date: 20220424
  Serious: No
  Sender: FDA-Public Use
  Company Number: US-SUN PHARMACEUTICAL INDUSTRIES LTD-2021R1-311162

PATIENT
  Sex: Male

DRUGS (1)
  1. LEVULAN KERASTICK [Suspect]
     Active Substance: AMINOLEVULINIC ACID HYDROCHLORIDE
     Indication: Product used for unknown indication
     Dosage: 2 DOSAGE FORM(APPLY 1 UNIT ON THE SKIN AS DIRECTED; 2 LEVULAN STICKS)
     Route: 061

REACTIONS (3)
  - Anxiety [Recovered/Resolved with Sequelae]
  - Rash [Recovered/Resolved with Sequelae]
  - Acne cystic [Recovered/Resolved with Sequelae]
